FAERS Safety Report 13697200 (Version 1)
Quarter: 2017Q2

REPORT INFORMATION
  Report Type: Spontaneous
  Country: US (occurrence: US)
  Receive Date: 20170627
  Receipt Date: 20170627
  Transmission Date: 20170830
  Serious: No
  Sender: FDA-Public Use
  Company Number: None

PATIENT
  Age: 61 Year
  Sex: Female

DRUGS (1)
  1. LETROZOLE TAB 2.5MG [Suspect]
     Active Substance: LETROZOLE

REACTIONS (4)
  - Haemoglobin decreased [None]
  - White blood cell count decreased [None]
  - Weight increased [None]
  - Night sweats [None]

NARRATIVE: CASE EVENT DATE: 20170627
